FAERS Safety Report 13873881 (Version 1)
Quarter: 2017Q3

REPORT INFORMATION
  Report Type: Report from Study
  Country: US (occurrence: US)
  Receive Date: 20170816
  Receipt Date: 20170816
  Transmission Date: 20171127
  Serious: Yes (Other)
  Sender: FDA-Public Use
  Company Number: US-JNJFOC-20170813494

PATIENT
  Age: 77 Year
  Sex: Male

DRUGS (4)
  1. GLUCOSAMINE [Concomitant]
     Active Substance: GLUCOSAMINE
  2. MULTIVITAMINS [Concomitant]
     Active Substance: VITAMINS
  3. FISH OIL W/TOCOPHEROL [Concomitant]
  4. IMBRUVICA [Suspect]
     Active Substance: IBRUTINIB
     Indication: CHRONIC LYMPHOCYTIC LEUKAEMIA
     Route: 048
     Dates: start: 20170802

REACTIONS (2)
  - Sinus headache [Not Recovered/Not Resolved]
  - Haemoglobin decreased [Unknown]

NARRATIVE: CASE EVENT DATE: 20170808
